FAERS Safety Report 19835846 (Version 1)
Quarter: 2021Q3

REPORT INFORMATION
  Report Type: Spontaneous
  Country: CN (occurrence: CN)
  Receive Date: 20210914
  Receipt Date: 20210914
  Transmission Date: 20211014
  Serious: Yes (Death, Other)
  Sender: FDA-Public Use
  Company Number: CN-BAYER-2021-209566

PATIENT
  Age: 66 Year
  Sex: Female

DRUGS (2)
  1. REGORAFENIB. [Suspect]
     Active Substance: REGORAFENIB
     Indication: COLORECTAL CANCER METASTATIC
     Dosage: 80 MG, QD FOR 21 DAYS ON/7 DAYS OFF
     Route: 048
  2. SINTILIMAB. [Suspect]
     Active Substance: SINTILIMAB
     Indication: COLORECTAL CANCER METASTATIC
     Dosage: 200 MG, Q3WK
     Route: 048

REACTIONS (8)
  - Myasthenia gravis [Recovered/Resolved]
  - Dermatitis [Recovered/Resolved]
  - Off label use [None]
  - Myocarditis [None]
  - Hepatic failure [Recovered/Resolved]
  - Myositis [Recovered/Resolved]
  - Rash maculo-papular [Recovered/Resolved]
  - Hepatitis [Recovered/Resolved]
